FAERS Safety Report 16066630 (Version 1)
Quarter: 2019Q1

REPORT INFORMATION
  Report Type: Spontaneous
  Country: US (occurrence: US)
  Receive Date: 20190212
  Receipt Date: 20190212
  Transmission Date: 20190418
  Serious: Yes (Other)
  Sender: FDA-Public Use
  Company Number: None

PATIENT
  Age: 53 Year
  Sex: Female

DRUGS (1)
  1. CUVITRU [Suspect]
     Active Substance: HUMAN IMMUNOGLOBULIN G
     Indication: HYPOGAMMAGLOBULINAEMIA
     Dosage: ?          OTHER FREQUENCY:EVERY 2 WEEKS ;?
     Route: 058
     Dates: start: 20181030

REACTIONS (7)
  - Rash generalised [None]
  - Vomiting [None]
  - Infusion related reaction [None]
  - Chills [None]
  - Dyspnoea [None]
  - Asthenia [None]
  - Product quality issue [None]

NARRATIVE: CASE EVENT DATE: 20190126
